FAERS Safety Report 21908139 (Version 1)
Quarter: 2023Q1

REPORT INFORMATION
  Report Type: Spontaneous
  Country: US (occurrence: None)
  Receive Date: 20230124
  Receipt Date: 20230124
  Transmission Date: 20230417
  Serious: Yes (Hospitalization)
  Sender: FDA-Public Use
  Company Number: None

PATIENT
  Age: 67 Year
  Sex: Female
  Weight: 81 kg

DRUGS (4)
  1. ENHERTU [Suspect]
     Active Substance: FAM-TRASTUZUMAB DERUXTECAN-NXKI
     Indication: Breast cancer female
     Dosage: OTHER FREQUENCY : Q21D;?
     Route: 041
     Dates: start: 20221228
  2. EMEND [Concomitant]
     Active Substance: APREPITANT
     Dates: start: 20221228
  3. PALONOSETRON [Concomitant]
     Active Substance: PALONOSETRON
     Dates: start: 20221228
  4. DEXAMETHASONE [Concomitant]
     Active Substance: DEXAMETHASONE
     Dates: start: 20221228

REACTIONS (14)
  - Dehydration [None]
  - Decreased appetite [None]
  - Myalgia [None]
  - Febrile neutropenia [None]
  - Sepsis [None]
  - Alopecia [None]
  - Hypokalaemia [None]
  - Anaemia [None]
  - Mental impairment [None]
  - Paranoia [None]
  - Emotional distress [None]
  - Loss of personal independence in daily activities [None]
  - Dysarthria [None]
  - Feeling abnormal [None]

NARRATIVE: CASE EVENT DATE: 20230108
